FAERS Safety Report 8827425 (Version 2)
Quarter: 2012Q4

REPORT INFORMATION
  Report Type: 
  Country: US (occurrence: US)
  Receive Date: 20121005
  Receipt Date: 20121204
  Transmission Date: 20130627
  Serious: No
  Sender: FDA-Public Use
  Company Number: US-ASTRAZENECA-2012SE73823

PATIENT
  Age: 51 Year
  Sex: Female
  Weight: 63.5 kg

DRUGS (4)
  1. SYMBICORT [Suspect]
     Indication: ASTHMA
     Dosage: 160/4.5 TWO PUFFS TWICE A DAY
     Route: 055
  2. SYMBICORT [Suspect]
     Indication: ASTHMA
     Dosage: 80/4.5 TWO PUFFS TWICE A DAY
     Route: 055
  3. PROAIR [Concomitant]
     Indication: INHALATION THERAPY
  4. ALBUTEROL [Concomitant]
     Indication: INHALATION THERAPY

REACTIONS (4)
  - Asthma [Unknown]
  - Dyspnoea [Unknown]
  - Cough [Unknown]
  - Off label use [Unknown]
